FAERS Safety Report 6785866-2 (Version None)
Quarter: 2010Q2

REPORT INFORMATION
  Report Type: 
  Country: None (occurrence: None)
  Receive Date: 20100623
  Receipt Date: 20100621
  Transmission Date: 20101027
  Serious: Yes (Other)
  Sender: FDA-Public Use
  Company Number: JP-PFIZER INC-2010070156

PATIENT
  Sex: Female

DRUGS (1)
  1. AROMASIN [Suspect]
     Dosage: 25 MG, 1X/DAY
     Route: 048
     Dates: start: 20080501

REACTIONS (1)
  - BLOOD GLUCOSE INCREASED [None]
